FAERS Safety Report 8812580 (Version 1)
Quarter: 2012Q4

REPORT INFORMATION
  Report Type: 
  Country: US (occurrence: US)
  Receive Date: 20120927
  Receipt Date: 20120927
  Transmission Date: 20130627
  Serious: Yes (Death, Hospitalization, Disabling, Other)
  Sender: FDA-Public Use
  Company Number: US-009507513-1105USA03431

PATIENT

DRUGS (4)
  1. FOSAMAX [Suspect]
     Indication: OSTEOPOROSIS
     Dosage: 70 mg, qw
     Route: 048
     Dates: start: 2005, end: 20071117
  2. FOSAMAX [Suspect]
     Dosage: 10 mg, UNK
     Route: 048
     Dates: start: 200504, end: 20071117
  3. FOSAMAX [Suspect]
     Dosage: 70 mg, UNK
     Route: 048
     Dates: start: 200712, end: 20081117
  4. FOSAMAX [Suspect]
     Dosage: 10 mg, UNK
     Route: 048
     Dates: start: 200712, end: 20081117

REACTIONS (59)
  - Hip fracture [Unknown]
  - Respiratory failure [Unknown]
  - Jaw disorder [Not Recovered/Not Resolved]
  - Pneumonia [Unknown]
  - Osteomyelitis [Unknown]
  - Osteonecrosis of jaw [Unknown]
  - Tooth disorder [Unknown]
  - Oral infection [Unknown]
  - Impaired healing [Unknown]
  - Oral disorder [Unknown]
  - Oral disorder [Unknown]
  - Oral disorder [Unknown]
  - Hypertension [Not Recovered/Not Resolved]
  - Dysphonia [Unknown]
  - Dyspnoea [Unknown]
  - Depression [Unknown]
  - Poor quality sleep [Unknown]
  - Weight fluctuation [Unknown]
  - Hallucination [Unknown]
  - Chronic obstructive pulmonary disease [Unknown]
  - Onychomycosis [Unknown]
  - Diverticulum [Unknown]
  - Haemorrhoids [Unknown]
  - Large intestine polyp [Unknown]
  - Varicose vein [Unknown]
  - Lacunar infarction [Unknown]
  - Renal failure [Unknown]
  - Arteriosclerosis coronary artery [Unknown]
  - Cerebrovascular accident [Unknown]
  - Anxiety [Unknown]
  - Deep vein thrombosis [Unknown]
  - Pleural effusion [Unknown]
  - Wound dehiscence [Unknown]
  - Malnutrition [Unknown]
  - Chest pain [Unknown]
  - Dental caries [Unknown]
  - Venous insufficiency [Unknown]
  - Renal failure [Unknown]
  - Sinus bradycardia [Unknown]
  - Bacterial infection [Unknown]
  - Hyponatraemia [Unknown]
  - Dehydration [Unknown]
  - Urinary tract infection [Unknown]
  - Toxic encephalopathy [Fatal]
  - Dementia [Fatal]
  - Agitation [Unknown]
  - Blood osmolarity abnormal [Fatal]
  - Loose tooth [Unknown]
  - Fistula discharge [Unknown]
  - Bone loss [Unknown]
  - Pollakiuria [Unknown]
  - Muscle spasms [Unknown]
  - Dysphagia [Unknown]
  - Myalgia [Unknown]
  - Arthralgia [Unknown]
  - Arthralgia [Unknown]
  - Arthralgia [Unknown]
  - Joint swelling [Unknown]
  - Bronchitis [Unknown]
